FAERS Safety Report 18034295 (Version 2)
Quarter: 2020Q3

REPORT INFORMATION
  Report Type: Spontaneous
  Country: US (occurrence: US)
  Receive Date: 20200716
  Receipt Date: 20200723
  Transmission Date: 20201103
  Serious: Yes (Life-Threatening, Hospitalization)
  Sender: FDA-Public Use
  Company Number: US-TEVA-2020-US-1799933

PATIENT
  Age: 33 Year
  Sex: Female

DRUGS (7)
  1. TRAMADOL. [Suspect]
     Active Substance: TRAMADOL
     Route: 065
  2. BETAMETHASONE. [Suspect]
     Active Substance: BETAMETHASONE
     Indication: CARDIAC FAILURE
     Route: 065
  3. FUROSEMIDE. [Suspect]
     Active Substance: FUROSEMIDE
     Indication: CARDIAC FAILURE
     Route: 065
  4. LABETALOL [Suspect]
     Active Substance: LABETALOL\LABETALOL HYDROCHLORIDE
     Indication: CARDIAC FAILURE
     Route: 065
  5. LOPERAMIDE [Suspect]
     Active Substance: LOPERAMIDE
     Indication: ABDOMINAL PAIN
     Dosage: 20 DOSAGE FORMS DAILY; SHE WAS TAKING 20 PILLS OF LOPERAMIDE 2 MG DAILY
     Route: 065
  6. HYDRALAZINE [Suspect]
     Active Substance: HYDRALAZINE HYDROCHLORIDE
     Indication: CARDIAC FAILURE
     Route: 065
  7. NITROGLYCERIN. [Suspect]
     Active Substance: NITROGLYCERIN
     Indication: CARDIAC FAILURE
     Route: 065

REACTIONS (9)
  - Abdominal pain [Unknown]
  - Cardiac failure [Recovered/Resolved]
  - Toxicity to various agents [Recovering/Resolving]
  - Live birth [Unknown]
  - Drug withdrawal syndrome [Unknown]
  - Amniorrhoea [Unknown]
  - Intentional overdose [Recovering/Resolving]
  - Maternal exposure during pregnancy [Unknown]
  - Drug abuse [Recovering/Resolving]
